FAERS Safety Report 4503275-3 (Version None)
Quarter: 2004Q4

REPORT INFORMATION
  Report Type: 
  Country: None (occurrence: None)
  Receive Date: 20041112
  Receipt Date: 20041031
  Transmission Date: 20050328
  Serious: Yes (Death)
  Sender: FDA-Public Use
  Company Number: 2004S1000250

PATIENT
  Age: 48 Year
  Sex: Male

DRUGS (7)
  1. CUBICIN [Suspect]
     Indication: GLYCOPEPTIDE ANTIBIOTIC RESISTANT ENTEROCOCCAL INFECTION
     Dosage: 6 MG/KG; Q24H; IV
     Route: 042
     Dates: start: 20040216, end: 20040224
  2. LINEZOLID [Concomitant]
  3. QUINIPRISTIN/DALFORPRISTIN [Concomitant]
  4. AMIKACIN [Concomitant]
  5. FLUCONAZOLE [Concomitant]
  6. GANCICLOVIR [Concomitant]
  7. TRIMETHOPRIM-SULFAMETHOXAZOLE [Concomitant]

REACTIONS (4)
  - BACTERIAL SEPSIS [None]
  - CATHETER BACTERAEMIA [None]
  - CITROBACTER INFECTION [None]
  - MULTI-ORGAN FAILURE [None]
